FAERS Safety Report 7411365-0 (Version None)
Quarter: 2011Q2

REPORT INFORMATION
  Report Type: 
  Country: None (occurrence: None)
  Receive Date: 20110413
  Receipt Date: 20100716
  Transmission Date: 20111010
  Serious: Yes (Hospitalization, Other)
  Sender: FDA-Public Use
  Company Number: US-BRISTOL-MYERS SQUIBB COMPANY-15170061

PATIENT
  Age: 80 Year
  Sex: Male

DRUGS (4)
  1. BENADRYL [Concomitant]
     Indication: PREMEDICATION
     Route: 042
  2. COREG [Concomitant]
     Route: 048
  3. ERBITUX [Suspect]
     Indication: COLON CANCER
     Dosage: LOADING DOSE = 400MG/M2
     Route: 042
     Dates: start: 20100615
  4. DECADRON [Concomitant]
     Indication: PREMEDICATION
     Route: 042

REACTIONS (2)
  - HYPOTENSION [None]
  - DYSPNOEA [None]
